FAERS Safety Report 9831446 (Version 3)
Quarter: 2014Q1

REPORT INFORMATION
  Report Type: Report from Study
  Country: US (occurrence: US)
  Receive Date: 20140121
  Receipt Date: 20140213
  Transmission Date: 20141002
  Serious: Yes (Death, Hospitalization)
  Sender: FDA-Public Use
  Company Number: PHHO2013US009031

PATIENT
  Age: 69 Year
  Sex: Female
  Weight: 56.3 kg

DRUGS (2)
  1. LBH589 [Suspect]
     Indication: LYMPHOMA
     Dosage: 10 MG, DAY 1, 3, 5, 15, 17, 19
     Dates: start: 20130628
  2. AFINITOR [Suspect]
     Indication: LYMPHOMA
     Dosage: 5 MG, DAILY
     Dates: start: 20130628

REACTIONS (5)
  - Thrombocytopenia [Recovered/Resolved]
  - Malignant neoplasm progression [Fatal]
  - Hypercalcaemia [Recovered/Resolved]
  - Cellulitis [Recovering/Resolving]
  - Bacterial infection [Unknown]
